FAERS Safety Report 14224085 (Version 1)
Quarter: 2017Q4

REPORT INFORMATION
  Report Type: Spontaneous
  Country: US (occurrence: US)
  Receive Date: 20171125
  Receipt Date: 20171125
  Transmission Date: 20180321
  Serious: Yes (Other)
  Sender: FDA-Public Use
  Company Number: None

PATIENT
  Age: 69 Year
  Sex: Female
  Weight: 51.75 kg

DRUGS (19)
  1. GLYBURIDE. [Concomitant]
     Active Substance: GLYBURIDE
  2. VITAMIN C [Concomitant]
     Active Substance: ASCORBIC ACID
  3. METFORMIN [Concomitant]
     Active Substance: METFORMIN HYDROCHLORIDE
  4. MAGNESIUM [Concomitant]
     Active Substance: MAGNESIUM
  5. VITAMIN D3 [Concomitant]
     Active Substance: CHOLECALCIFEROL
  6. BIOTIN [Concomitant]
     Active Substance: BIOTIN
  7. ASPIRIN. [Concomitant]
     Active Substance: ASPIRIN
  8. FARXIGA [Suspect]
     Active Substance: DAPAGLIFLOZIN PROPANEDIOL
     Indication: DIABETES MELLITUS
     Dosage: ?          QUANTITY:1 TABLET(S);?
     Route: 048
     Dates: start: 20170815, end: 20171122
  9. KR2 [Concomitant]
  10. CURCUMIN [Concomitant]
     Active Substance: CURCUMIN
  11. VICTOZA [Concomitant]
     Active Substance: LIRAGLUTIDE
  12. MELOXICAM. [Concomitant]
     Active Substance: MELOXICAM
  13. PROGESTERONE. [Concomitant]
     Active Substance: PROGESTERONE
  14. KRILL OIL [Concomitant]
     Active Substance: DIETARY SUPPLEMENT
  15. CHROMAX [Concomitant]
  16. LISINOPRIL. [Concomitant]
     Active Substance: LISINOPRIL
  17. HYDROCODONE [Concomitant]
     Active Substance: HYDROCODONE
  18. VITAMIN E [Concomitant]
     Active Substance: .ALPHA.-TOCOPHEROL
  19. CQ10 [Concomitant]
     Active Substance: UBIDECARENONE

REACTIONS (1)
  - Vulvovaginal pruritus [None]

NARRATIVE: CASE EVENT DATE: 20171113
